FAERS Safety Report 19774689 (Version 1)
Quarter: 2021Q3

REPORT INFORMATION
  Report Type: Report from Study
  Country: US (occurrence: US)
  Receive Date: 20210901
  Receipt Date: 20210901
  Transmission Date: 20211014
  Serious: Yes (Other)
  Sender: FDA-Public Use
  Company Number: US-TAKEDA-2021TUS033902

PATIENT
  Age: 51 Year
  Sex: Female

DRUGS (1)
  1. HUMAN NORMAL IMMUNOGLOBULIN; LIQUID [Suspect]
     Active Substance: HUMAN IMMUNOGLOBULIN G
     Indication: PRIMARY IMMUNODEFICIENCY SYNDROME
     Route: 042

REACTIONS (10)
  - Foreign body in respiratory tract [Unknown]
  - Joint swelling [Unknown]
  - Post viral fatigue syndrome [Unknown]
  - Viral pharyngitis [Unknown]
  - Sinusitis [Unknown]
  - Staphylococcal infection [Unknown]
  - Pain [Unknown]
  - COVID-19 [Unknown]
  - Musculoskeletal discomfort [Unknown]
  - Arthralgia [Unknown]

NARRATIVE: CASE EVENT DATE: 202005
